FAERS Safety Report 19078827 (Version 3)
Quarter: 2022Q3

REPORT INFORMATION
  Report Type: Report from Study
  Country: DE (occurrence: DE)
  Receive Date: 20210331
  Receipt Date: 20220715
  Transmission Date: 20221026
  Serious: Yes (Hospitalization, Other)
  Sender: FDA-Public Use
  Company Number: DE-TAKEDA-2021TUS019823

PATIENT
  Sex: Male

DRUGS (5)
  1. ICATIBANT [Suspect]
     Active Substance: ICATIBANT ACETATE
     Indication: Hereditary angioedema
     Dosage: UNK
     Route: 065
  2. ICATIBANT [Suspect]
     Active Substance: ICATIBANT ACETATE
     Indication: Hereditary angioedema
     Dosage: UNK
     Route: 065
  3. AMOXI CLAVULAN AL [Concomitant]
     Indication: Antibiotic therapy
     Dosage: 875 MILLIGRAM, BID
     Route: 048
     Dates: start: 20180806
  4. Unacid [Concomitant]
     Indication: Product used for unknown indication
     Dosage: UNK
     Route: 048
     Dates: start: 201809, end: 201809
  5. PANTOPRAZOLE SODIUM [Concomitant]
     Active Substance: PANTOPRAZOLE SODIUM
     Indication: Oesophageal carcinoma
     Dosage: 40 MILLIGRAM, BID
     Route: 048
     Dates: start: 20200421

REACTIONS (2)
  - Dyspepsia [Recovered/Resolved]
  - Gastrooesophageal cancer [Recovered/Resolved]

NARRATIVE: CASE EVENT DATE: 20200421
